FAERS Safety Report 5369227-9 (Version None)
Quarter: 2007Q2

REPORT INFORMATION
  Report Type: 
  Country: None (occurrence: None)
  Receive Date: 20070625
  Receipt Date: 20070301
  Transmission Date: 20071010
  Serious: No
  Sender: FDA-Public Use
  Company Number: US-ASTRAZENECA-2007UW03979

PATIENT
  Age: 64 Year
  Sex: Female
  Weight: 81.6 kg

DRUGS (8)
  1. CRESTOR [Suspect]
     Indication: BLOOD CHOLESTEROL INCREASED
     Route: 048
     Dates: start: 20060201
  2. CRESTOR [Suspect]
     Route: 048
  3. ZETIA [Concomitant]
  4. DETROL [Concomitant]
  5. PREVACID [Concomitant]
  6. CELEBREX [Concomitant]
  7. BAYER ASA [Concomitant]
  8. NATURAL VITAMINS [Concomitant]

REACTIONS (2)
  - MUSCLE SPASMS [None]
  - VEIN DISORDER [None]
